FAERS Safety Report 7741430-X (Version None)
Quarter: 2011Q3

REPORT INFORMATION
  Report Type: 
  Country: None (occurrence: None)
  Receive Date: 20110909
  Receipt Date: 20110831
  Transmission Date: 20111222
  Serious: Yes (Other)
  Sender: FDA-Public Use
  Company Number: CN-ASTRAZENECA-2011SE52186

PATIENT
  Sex: Female

DRUGS (4)
  1. ROPIVACAINE HYDROCHLORIDE [Suspect]
     Indication: ANALGESIC THERAPY
  2. LIDOCAINE [Suspect]
  3. BUPIVACAINE HCL [Suspect]
  4. FENTANYL-100 [Suspect]
     Indication: ANALGESIC THERAPY
     Dosage: 2 UG/ML

REACTIONS (5)
  - NAUSEA [None]
  - PRURITUS [None]
  - RESPIRATORY DEPRESSION [None]
  - HYPOTENSION [None]
  - VOMITING [None]
